FAERS Safety Report 5396724-2 (Version None)
Quarter: 2007Q3

REPORT INFORMATION
  Report Type: 
  Country: None (occurrence: None)
  Receive Date: 20070725
  Receipt Date: 20070717
  Transmission Date: 20080115
  Serious: Yes (Death, Hospitalization, Other)
  Sender: FDA-Public Use
  Company Number: US-PURDUE-USA_2007_0027659

PATIENT
  Age: 55 Year
  Sex: Male

DRUGS (10)
  1. OXYCONTIN [Suspect]
     Indication: ARTHRALGIA
     Dosage: 40 MG, SEE TEXT
     Dates: start: 19980501, end: 19991018
  2. THEOPHYLLINE (SIMILAR TO 40-086) [Concomitant]
     Dosage: 600 MG, Q12H
  3. NEURONTIN [Concomitant]
     Dosage: 400 MG, BID
  4. TRAZODONE HCL [Concomitant]
     Dosage: 150 MG, DAILY
  5. WELLBUTRIN [Concomitant]
     Dosage: 150 MG, BID
  6. EFFEXOR XR [Concomitant]
     Dosage: 150 MG, BID
  7. K-DUR 10 [Concomitant]
     Dosage: 20 MG, BID
  8. PAXIL [Concomitant]
     Dosage: 20 MG, BID
  9. DIOVAN [Concomitant]
     Dosage: 80 MG, DAILY
  10. MOTRIN [Concomitant]
     Indication: ARTHRALGIA
     Dosage: UNK, SEE TEXT

REACTIONS (12)
  - ANHEDONIA [None]
  - DEATH [None]
  - DEPRESSION [None]
  - DRUG DEPENDENCE [None]
  - EMOTIONAL DISORDER [None]
  - INTENTIONAL DRUG MISUSE [None]
  - JOINT INJURY [None]
  - LETHARGY [None]
  - PAIN [None]
  - RENAL FAILURE [None]
  - SLEEP APNOEA SYNDROME [None]
  - SOMNOLENCE [None]
